FAERS Safety Report 19321488 (Version 2)
Quarter: 2021Q2

REPORT INFORMATION
  Report Type: Spontaneous
  Country: US (occurrence: US)
  Receive Date: 20210528
  Receipt Date: 20210603
  Transmission Date: 20210717
  Serious: Yes (Other)
  Sender: FDA-Public Use
  Company Number: US-ASTRAZENECA-2021A466101

PATIENT
  Sex: Female
  Weight: 97.5 kg

DRUGS (6)
  1. FLUPENTIXOL DIHYDROCHLORIDE/NORTRIPTYLINE HYDROCHLORIDE [Concomitant]
     Dosage: 20 MILLIGRAM AT NIGHT
     Route: 065
  2. OMEPRAZOLE. [Concomitant]
     Active Substance: OMEPRAZOLE
     Route: 065
  3. METOPROLOL. [Concomitant]
     Active Substance: METOPROLOL
     Route: 065
  4. ATIVAN [Concomitant]
     Active Substance: LORAZEPAM
     Dosage: 0.5 MILLIGRAM AT NIGHT
     Route: 065
  5. ASPIRINE [Concomitant]
     Active Substance: ASPIRIN
     Route: 065
  6. LYNPARZA [Suspect]
     Active Substance: OLAPARIB
     Indication: OVARIAN CANCER
     Dosage: 200 MG IN THE AM; 100 MG IN THE PM, CHANGED BASED ON TOLERANCE AND NEUTROPENIA MANY TIMES
     Route: 065
     Dates: start: 20190415

REACTIONS (3)
  - Deep vein thrombosis [Unknown]
  - Neutropenia [Unknown]
  - Hypercoagulation [Unknown]

NARRATIVE: CASE EVENT DATE: 20200608
